FAERS Safety Report 10575845 (Version 1)
Quarter: 2014Q4

REPORT INFORMATION
  Report Type: Spontaneous
  Country: US (occurrence: US)
  Receive Date: 20141111
  Receipt Date: 20141111
  Transmission Date: 20150529
  Serious: No
  Sender: FDA-Public Use
  Company Number: US-CREALTA PHARMACEUTICALS-2014S1000052

PATIENT
  Sex: Male
  Weight: 98.06 kg

DRUGS (13)
  1. LISINOPRIL. [Concomitant]
     Active Substance: LISINOPRIL
     Indication: PRODUCT USED FOR UNKNOWN INDICATION
     Route: 048
  2. PROCARDIA [Concomitant]
     Active Substance: NIFEDIPINE
     Indication: PRODUCT USED FOR UNKNOWN INDICATION
     Route: 048
  3. LEVOTHYROXINE [Concomitant]
     Active Substance: LEVOTHYROXINE
     Indication: THYROID DISORDER
     Route: 048
  4. COLCRYS [Concomitant]
     Active Substance: COLCHICINE
     Indication: GOUT
     Route: 048
  5. KRYSTEXXA [Suspect]
     Active Substance: PEGLOTICASE
     Indication: GOUT
     Route: 042
     Dates: start: 201406, end: 201406
  6. VITAMIN D [Concomitant]
     Active Substance: CHOLECALCIFEROL
     Indication: PRODUCT USED FOR UNKNOWN INDICATION
     Route: 048
  7. CLONIDINE. [Concomitant]
     Active Substance: CLONIDINE
     Indication: BLOOD PRESSURE
     Route: 048
  8. CARVEDILOL. [Concomitant]
     Active Substance: CARVEDILOL
     Indication: PRODUCT USED FOR UNKNOWN INDICATION
     Route: 048
  9. CALCITRIOL. [Concomitant]
     Active Substance: CALCITRIOL
     Indication: PRODUCT USED FOR UNKNOWN INDICATION
     Route: 048
  10. TUMS [Concomitant]
     Active Substance: CALCIUM CARBONATE
     Indication: PRODUCT USED FOR UNKNOWN INDICATION
     Route: 048
  11. KRYSTEXXA [Suspect]
     Active Substance: PEGLOTICASE
     Route: 042
     Dates: start: 2014, end: 2014
  12. KRYSTEXXA [Suspect]
     Active Substance: PEGLOTICASE
     Route: 042
     Dates: start: 2014, end: 2014
  13. KRYSTEXXA [Suspect]
     Active Substance: PEGLOTICASE
     Route: 042
     Dates: start: 2014, end: 2014

REACTIONS (1)
  - Gout [Recovering/Resolving]

NARRATIVE: CASE EVENT DATE: 2014
